FAERS Safety Report 8434329-7 (Version None)
Quarter: 2012Q2

REPORT INFORMATION
  Report Type: 
  Country: None (occurrence: None)
  Receive Date: 20120613
  Receipt Date: 20120608
  Transmission Date: 20120825
  Serious: Yes (Hospitalization)
  Sender: FDA-Public Use
  Company Number: US-MERCK-1202USA02449

PATIENT
  Sex: Female

DRUGS (11)
  1. FOSAMAX PLUS D [Suspect]
     Route: 048
     Dates: start: 20080301, end: 20100201
  2. VITAMINS (UNSPECIFIED) [Concomitant]
     Route: 065
     Dates: start: 19850101
  3. VITAMIN E [Concomitant]
     Route: 065
     Dates: start: 19980101, end: 19990101
  4. FOSAMAX [Suspect]
     Route: 048
     Dates: start: 20011201, end: 20060101
  5. FOSAMAX [Suspect]
     Indication: OSTEOPOROSIS
     Route: 048
     Dates: start: 19991201, end: 20011101
  6. VITAMIN D (UNSPECIFIED) [Concomitant]
     Route: 065
     Dates: start: 19960101, end: 20110101
  7. FOSAMAX [Suspect]
     Route: 048
     Dates: start: 20071001, end: 20080201
  8. SYNTHROID [Concomitant]
     Route: 065
     Dates: start: 19950401
  9. HORMONES (UNSPECIFIED) [Concomitant]
     Route: 065
     Dates: start: 19980201, end: 20101101
  10. FOSAMAX PLUS D [Suspect]
     Indication: OSTEOPOROSIS
     Route: 048
     Dates: start: 20060201, end: 20070901
  11. CALCIUM (UNSPECIFIED) [Concomitant]
     Route: 065
     Dates: start: 19850101

REACTIONS (8)
  - PAIN IN EXTREMITY [None]
  - LOW TURNOVER OSTEOPATHY [None]
  - FEMUR FRACTURE [None]
  - VITAMIN D DEFICIENCY [None]
  - BLOOD CHOLESTEROL INCREASED [None]
  - TOOTH DISORDER [None]
  - ARTHRALGIA [None]
  - ADVERSE EVENT [None]
